FAERS Safety Report 6291098-7 (Version None)
Quarter: 2009Q3

REPORT INFORMATION
  Report Type: 
  Country: None (occurrence: None)
  Receive Date: 20090730
  Receipt Date: 20090722
  Transmission Date: 20100115
  Serious: Yes (Other)
  Sender: FDA-Public Use
  Company Number: A0796941A

PATIENT
  Age: 74 Year
  Sex: Male

DRUGS (4)
  1. PROMACTA [Suspect]
     Indication: IDIOPATHIC THROMBOCYTOPENIC PURPURA
     Dosage: 50MG UNKNOWN
     Route: 048
     Dates: start: 20090204
  2. ROMIPLOSTIM [Concomitant]
     Indication: IDIOPATHIC THROMBOCYTOPENIC PURPURA
     Dates: start: 20080925
  3. IMMUNE GLOBULIN INTRAVENOUS (HUMAN) [Concomitant]
  4. BLOOD TRANSFUSION [Concomitant]

REACTIONS (6)
  - GASTROINTESTINAL HAEMORRHAGE [None]
  - HAEMOGLOBIN DECREASED [None]
  - MYELOFIBROSIS [None]
  - NUCLEATED RED CELLS [None]
  - PLATELET COUNT DECREASED [None]
  - RETICULOCYTOSIS [None]
